FAERS Safety Report 25186836 (Version 1)
Quarter: 2025Q2

REPORT INFORMATION
  Report Type: Report from Study
  Country: US (occurrence: US)
  Receive Date: 20250411
  Receipt Date: 20250411
  Transmission Date: 20250717
  Serious: Yes (Other)
  Sender: ABBVIE
  Company Number: US-ABBVIE-6220042

PATIENT
  Age: 76 Year
  Sex: Female

DRUGS (1)
  1. VENCLEXTA [Suspect]
     Active Substance: VENETOCLAX
     Indication: Chronic lymphocytic leukaemia recurrent
     Dosage: LAST ADMIN DATE: 2025
     Route: 048
     Dates: start: 202503

REACTIONS (1)
  - Ureteral stent insertion [Recovered/Resolved]

NARRATIVE: CASE EVENT DATE: 20250101
